FAERS Safety Report 4471045-0 (Version None)
Quarter: 2004Q4

REPORT INFORMATION
  Report Type: 
  Country: None (occurrence: None)
  Receive Date: 20041011
  Receipt Date: 20041002
  Transmission Date: 20050328
  Serious: Yes (Life-Threatening)
  Sender: FDA-Public Use
  Company Number: GB-GLAXOSMITHKLINE-B0346990A

PATIENT
  Age: 37 Year
  Sex: Female

DRUGS (4)
  1. AUGMENTIN [Suspect]
     Indication: ANTIBACTERIAL PROPHYLAXIS
     Route: 042
     Dates: start: 20040226, end: 20040226
  2. MIDAZOLAM HCL [Concomitant]
     Indication: GENERAL ANAESTHESIA
     Route: 042
     Dates: start: 20040226, end: 20040226
  3. FENTANYL [Concomitant]
     Indication: GENERAL ANAESTHESIA
     Route: 042
     Dates: start: 20040226, end: 20040226
  4. PROPOFOL [Concomitant]
     Indication: GENERAL ANAESTHESIA
     Route: 042
     Dates: start: 20040226, end: 20040226

REACTIONS (5)
  - ANGIONEUROTIC OEDEMA [None]
  - GENERALISED ERYTHEMA [None]
  - HYPOTENSION [None]
  - TACHYCARDIA [None]
  - TRYPTASE [None]
